FAERS Safety Report 6913358-6 (Version None)
Quarter: 2010Q3

REPORT INFORMATION
  Report Type: 
  Country: None (occurrence: None)
  Receive Date: 20100809
  Receipt Date: 20100729
  Transmission Date: 20110219
  Serious: Yes (Other)
  Sender: FDA-Public Use
  Company Number: US-JNJFOC-20100709059

PATIENT
  Age: 4 Year
  Sex: Male

DRUGS (2)
  1. REMICADE [Suspect]
     Indication: CROHN'S DISEASE
     Dosage: 1 1/2 YEARS
     Route: 042
  2. METHOTREXATE [Concomitant]

REACTIONS (1)
  - CARDIAC MURMUR [None]
